FAERS Safety Report 7208495-5 (Version None)
Quarter: 2010Q4

REPORT INFORMATION
  Report Type: 
  Country: None (occurrence: None)
  Receive Date: 20101222
  Receipt Date: 20101208
  Transmission Date: 20110411
  Serious: Yes (Death, Hospitalization)
  Sender: FDA-Public Use
  Company Number: 2010002103

PATIENT
  Age: 55 Year
  Sex: Female
  Weight: 50.7 kg

DRUGS (13)
  1. ERLOTINIB HYDROCHLORIDE [Suspect]
     Indication: PANCREATIC CARCINOMA
     Dosage: (100 MG,QD),ORAL
     Route: 048
     Dates: start: 20100211, end: 20100522
  2. GEMCITABINE [Suspect]
     Indication: PANCREATIC CARCINOMA
     Dosage: (1000 MG/M2, ON DAYS 1, 8 , 15), INTRAVENOUS
     Route: 042
     Dates: start: 20100211, end: 20100520
  3. IMC-AL2 [Suspect]
     Indication: PANCREATIC CARCINOMA
     Dosage: (6 MG/KG, ON DAYS 1,8,15, AND 22), INTRAVENOUS
     Route: 042
     Dates: start: 20100211, end: 20100520
  4. METHADONE HCL [Concomitant]
  5. NORCO [Concomitant]
  6. IBUPROFEN [Concomitant]
  7. RITALIN [Concomitant]
  8. ZOLOFT [Concomitant]
  9. LOVENOX [Concomitant]
  10. ZOFRAN [Concomitant]
  11. COMPAZINE [Concomitant]
  12. IMODIUM [Concomitant]
  13. CLOBETASOL (CLOBETASOL) [Concomitant]

REACTIONS (5)
  - INTERSTITIAL LUNG DISEASE [None]
  - MALIGNANT NEOPLASM PROGRESSION [None]
  - PANCREATIC CARCINOMA METASTATIC [None]
  - PNEUMONITIS [None]
  - RESPIRATORY FAILURE [None]
